FAERS Safety Report 19569735 (Version 1)
Quarter: 2021Q3

REPORT INFORMATION
  Report Type: Spontaneous
  Country: CA (occurrence: CA)
  Receive Date: 20210716
  Receipt Date: 20210716
  Transmission Date: 20211014
  Serious: Yes (Other)
  Sender: FDA-Public Use
  Company Number: CA-TEVA-2021-CA-1932035

PATIENT
  Sex: Male

DRUGS (5)
  1. PREDNISONE. [Suspect]
     Active Substance: PREDNISONE
     Dosage: 50 MILLIGRAM DAILY;
     Route: 065
     Dates: start: 202003
  2. MYCOPHENOLATE MOFETIL. [Suspect]
     Active Substance: MYCOPHENOLATE MOFETIL
     Dosage: 3 GRAM DAILY;
     Dates: start: 202009, end: 202103
  3. PREDNISONE. [Suspect]
     Active Substance: PREDNISONE
     Dosage: 12.5 MILLIGRAM DAILY;
     Route: 065
  4. MYCOPHENOLATE MOFETIL. [Suspect]
     Active Substance: MYCOPHENOLATE MOFETIL
     Dosage: 2 GRAM DAILY;
     Dates: start: 202003, end: 202009
  5. PREDNISONE. [Suspect]
     Active Substance: PREDNISONE
     Dosage: 30 MILLIGRAM DAILY;
     Route: 065
     Dates: start: 202009

REACTIONS (2)
  - Lung disorder [Unknown]
  - General physical health deterioration [Unknown]
